FAERS Safety Report 17190993 (Version 1)
Quarter: 2019Q4

REPORT INFORMATION
  Report Type: Spontaneous
  Country: CA (occurrence: CA)
  Receive Date: 20191223
  Receipt Date: 20191223
  Transmission Date: 20200122
  Serious: Yes (Hospitalization, Other)
  Sender: FDA-Public Use
  Company Number: CA-PFIZER INC-2019549496

PATIENT
  Age: 72 Year
  Sex: Female

DRUGS (21)
  1. CICLESONIDE [Concomitant]
     Active Substance: CICLESONIDE
     Dosage: UNK
     Route: 065
  2. PANTOPRAZOLE SODIUM ANHYDROUS [Concomitant]
     Active Substance: PANTOPRAZOLE SODIUM ANHYDROUS
     Dosage: 40 MG, UNK
     Route: 065
  3. CALCIUM CARBONATE/CALCIUM CITRATE/CALCIUM PHOSPHATE/CHOLECALCIFEROL/VITAMIN D [Suspect]
     Active Substance: CALCIUM CARBONATE\CALCIUM CITRATE\CALCIUM PHOSPHATE\CHOLECALCIFEROL\VITAMIN D
     Dosage: 1 DF, UNK
     Route: 065
  4. SPIRIVA [Suspect]
     Active Substance: TIOTROPIUM BROMIDE MONOHYDRATE
     Dosage: UNK
     Route: 065
  5. CALCIUM CARBONATE/CALCIUM CITRATE/CALCIUM PHOSPHATE/CHOLECALCIFEROL/VITAMIN D [Suspect]
     Active Substance: CALCIUM CARBONATE\CALCIUM CITRATE\CALCIUM PHOSPHATE\CHOLECALCIFEROL\VITAMIN D
     Dosage: 2 DF, 2X/DAY
     Route: 065
  6. ACLIDINIUM BROMIDE. [Concomitant]
     Active Substance: ACLIDINIUM BROMIDE
     Dosage: 400 MG, 2X/DAY
     Route: 065
  7. FORMOTEROL FUMARATE [Concomitant]
     Active Substance: FORMOTEROL FUMARATE
     Dosage: 12 DF, 2X/DAY
     Route: 065
  8. SERAX [OXAZEPAM] [Concomitant]
     Dosage: 30 MG, UNK
     Route: 065
  9. SALBUTAMOL [Suspect]
     Active Substance: ALBUTEROL
     Dosage: 2.5 MG, UNK
     Route: 065
  10. ATIVAN [Concomitant]
     Active Substance: LORAZEPAM
     Dosage: 1 MG, UNK
     Route: 065
  11. FORMOTEROL [Concomitant]
     Active Substance: FORMOTEROL
     Dosage: UNK
     Route: 065
  12. ADVAIR HFA [Suspect]
     Active Substance: FLUTICASONE PROPIONATE\SALMETEROL XINAFOATE
     Dosage: UNK
     Route: 065
  13. ALVESCO [Concomitant]
     Active Substance: CICLESONIDE
     Dosage: 2 DF, 2X/DAY
     Route: 065
  14. FOSAMAX [Concomitant]
     Active Substance: ALENDRONATE SODIUM
     Dosage: 700 MG, UNK
     Route: 065
  15. LIPITOR [Concomitant]
     Active Substance: ATORVASTATIN CALCIUM
     Dosage: 10 MG, UNK
     Route: 065
  16. SINUS RINSE [Concomitant]
     Active Substance: SODIUM BICARBONATE\SODIUM CHLORIDE
     Dosage: UNK
     Route: 065
  17. AMLODIPINE BESILATE [Suspect]
     Active Substance: AMLODIPINE BESYLATE
     Dosage: 2.5 MG, UNK
     Route: 065
  18. MEPOLIZUMAB [Suspect]
     Active Substance: MEPOLIZUMAB
     Dosage: UNK
     Route: 065
  19. HYDROCHLOROTHIAZIDE. [Concomitant]
     Active Substance: HYDROCHLOROTHIAZIDE
     Dosage: 25 MG, UNK
     Route: 065
  20. SINGULAIR [Concomitant]
     Active Substance: MONTELUKAST SODIUM
     Dosage: 10 MG, UNK
     Route: 065
  21. UNIPHYL [Concomitant]
     Active Substance: THEOPHYLLINE ANHYDROUS
     Dosage: 400 MG, UNK
     Route: 065

REACTIONS (29)
  - Chronic obstructive pulmonary disease [Unknown]
  - Dyspnoea [Unknown]
  - Cushing^s syndrome [Unknown]
  - Osteoporosis [Unknown]
  - Acute respiratory failure [Unknown]
  - Breast neoplasm [Unknown]
  - Bronchitis chronic [Unknown]
  - Hypertension [Unknown]
  - Influenza [Unknown]
  - Lipohypertrophy [Unknown]
  - Pneumonia [Unknown]
  - Asthma [Unknown]
  - Neurosensory hypoacusis [Unknown]
  - Oral candidiasis [Unknown]
  - Productive cough [Unknown]
  - Breath sounds abnormal [Unknown]
  - Drug intolerance [Unknown]
  - Emphysema [Unknown]
  - Presbyacusis [Unknown]
  - Basal cell carcinoma [Unknown]
  - Pulmonary mass [Unknown]
  - Eosinophilia [Unknown]
  - Hypercholesterolaemia [Unknown]
  - Macrocytosis [Unknown]
  - Skin lesion [Unknown]
  - Cushingoid [Unknown]
  - Escherichia infection [Unknown]
  - Kyphosis [Unknown]
  - Sinus tachycardia [Unknown]
